FAERS Safety Report 24668063 (Version 1)
Quarter: 2024Q4

REPORT INFORMATION
  Report Type: Spontaneous
  Country: US (occurrence: US)
  Receive Date: 20241127
  Receipt Date: 20241127
  Transmission Date: 20250114
  Serious: No
  Sender: ELI LILLY AND COMPANY
  Company Number: US-ELI_LILLY_AND_COMPANY-US202411016086

PATIENT
  Age: 60 Year
  Sex: Female

DRUGS (1)
  1. VERZENIO [Suspect]
     Active Substance: ABEMACICLIB
     Indication: Breast cancer female
     Dosage: 50 MG, BID
     Route: 048

REACTIONS (11)
  - Blood magnesium decreased [Unknown]
  - Red blood cell count abnormal [Unknown]
  - Dyspnoea [Unknown]
  - Breast pain [Unknown]
  - Lymph node pain [Unknown]
  - Product dose omission issue [Unknown]
  - Dehydration [Unknown]
  - Fatigue [Unknown]
  - Anaemia [Unknown]
  - White blood cell count decreased [Unknown]
  - Diarrhoea [Unknown]
